FAERS Safety Report 15136587 (Version 7)
Quarter: 2019Q1

REPORT INFORMATION
  Report Type: Report from Study
  Country: US (occurrence: US)
  Receive Date: 20180712
  Receipt Date: 20190311
  Transmission Date: 20190417
  Serious: Yes (Hospitalization, Other)
  Sender: FDA-Public Use
  Company Number: US-ACTELION-A-NJ2018-172564

PATIENT
  Age: 58 Year
  Sex: Male
  Weight: 74.83 kg

DRUGS (6)
  1. UPTRAVI [Suspect]
     Active Substance: SELEXIPAG
     Indication: PULMONARY ARTERIAL HYPERTENSION
     Dosage: 1400 MCG, BID
     Route: 048
  2. UPTRAVI [Suspect]
     Active Substance: SELEXIPAG
     Dosage: 1200 MCG, BID
     Route: 048
  3. UPTRAVI [Suspect]
     Active Substance: SELEXIPAG
     Dosage: 600 MCG, BID
     Route: 048
  4. UPTRAVI [Suspect]
     Active Substance: SELEXIPAG
     Dosage: 1600 MCG, UNK
     Route: 048
  5. SILDENAFIL CITRATE. [Concomitant]
     Active Substance: SILDENAFIL CITRATE
  6. OPSUMIT [Suspect]
     Active Substance: MACITENTAN
     Indication: PULMONARY ARTERIAL HYPERTENSION
     Dosage: 10 MG, QD
     Route: 048

REACTIONS (21)
  - Liver disorder [Unknown]
  - Weight decreased [Unknown]
  - Oedema peripheral [Unknown]
  - Fluid retention [Unknown]
  - Erectile dysfunction [Unknown]
  - Diarrhoea [Unknown]
  - Transfusion [Unknown]
  - Depression [Unknown]
  - Dyspnoea exertional [Recovered/Resolved]
  - Dizziness [Unknown]
  - Hepatic cirrhosis [Unknown]
  - Pain in extremity [Recovered/Resolved]
  - Malaise [Unknown]
  - Suicidal ideation [Unknown]
  - Vomiting [Unknown]
  - Oedema [Recovered/Resolved]
  - Haemoglobin decreased [Unknown]
  - Pulmonary hypertension [Unknown]
  - Fall [Unknown]
  - Decreased appetite [Unknown]
  - Nausea [Unknown]

NARRATIVE: CASE EVENT DATE: 201801
